FAERS Safety Report 20039500 (Version 1)
Quarter: 2021Q4

REPORT INFORMATION
  Report Type: Spontaneous
  Country: CN (occurrence: CN)
  Receive Date: 20211106
  Receipt Date: 20211106
  Transmission Date: 20220304
  Serious: Yes (Other)
  Sender: FDA-Public Use
  Company Number: CN-NOVARTISPH-NVSC2021CN244852

PATIENT
  Age: 14 Year
  Sex: Female
  Weight: 42 kg

DRUGS (3)
  1. TOBRADEX [Suspect]
     Active Substance: DEXAMETHASONE\TOBRAMYCIN
     Indication: Conjunctivitis
     Dosage: 1 DRP, TID (1 DRP A TIME)
     Route: 047
     Dates: start: 20210904, end: 20210906
  2. GANCICLOVIR [Concomitant]
     Active Substance: GANCICLOVIR
     Indication: Conjunctivitis
     Dosage: 1 DRP, QID (1 DRP A TIME) (OPTHALAMIC GEL )
     Route: 047
     Dates: start: 20210830, end: 20210906
  3. ACYCLOVIR [Concomitant]
     Active Substance: ACYCLOVIR
     Indication: Conjunctivitis
     Dosage: 1 DRP, TID (1 DRP A TIME)
     Route: 047
     Dates: start: 20210904, end: 20210906

REACTIONS (1)
  - Corneal exfoliation [Recovered/Resolved]

NARRATIVE: CASE EVENT DATE: 20210906
